FAERS Safety Report 21024370 (Version 2)
Quarter: 2022Q3

REPORT INFORMATION
  Report Type: Spontaneous
  Country: FR (occurrence: FR)
  Receive Date: 20220629
  Receipt Date: 20220812
  Transmission Date: 20221027
  Serious: Yes (Life-Threatening, Hospitalization, Other)
  Sender: FDA-Public Use
  Company Number: FR-JAZZ-2022-FR-022046

PATIENT

DRUGS (3)
  1. XYREM [Suspect]
     Active Substance: SODIUM OXYBATE
     Indication: Narcolepsy
     Dosage: 4.5 GRAM, PER DAY
     Route: 048
  2. ALCOHOL [Suspect]
     Active Substance: ALCOHOL
     Indication: Product used for unknown indication
     Route: 048
  3. ESCITALOPRAM [Concomitant]
     Active Substance: ESCITALOPRAM OXALATE
     Dosage: 10 MILLIGRAM PER DAY

REACTIONS (7)
  - Coma [Unknown]
  - Suicide attempt [Unknown]
  - Suicidal ideation [Unknown]
  - Toxicity to various agents [Unknown]
  - Overdose [Unknown]
  - Contraindicated product administered [Unknown]
  - Hypernatraemia [Unknown]
